FAERS Safety Report 9658839 (Version 2)
Quarter: 2013Q4

REPORT INFORMATION
  Report Type: Spontaneous
  Country: US (occurrence: US)
  Receive Date: 20131030
  Receipt Date: 20131030
  Transmission Date: 20140711
  Serious: No
  Sender: FDA-Public Use
  Company Number: US-PURDUE-USA-2010-0055386

PATIENT
  Sex: Male

DRUGS (3)
  1. OXYCONTIN (NDA 22-272) [Suspect]
     Indication: MUSCULOSKELETAL PAIN
     Dosage: 80 MG, TID
     Route: 048
     Dates: start: 201106
  2. OXYCONTIN (NDA 22-272) [Suspect]
     Indication: BACK PAIN
  3. NORCO [Concomitant]
     Indication: PAIN

REACTIONS (2)
  - Inadequate analgesia [Unknown]
  - Drug ineffective [Not Recovered/Not Resolved]
